FAERS Safety Report 9178213 (Version 1)
Quarter: 2012Q4

REPORT INFORMATION
  Report Type: 
  Country: US (occurrence: US)
  Receive Date: 20121025
  Receipt Date: 20121025
  Transmission Date: 20130627
  Serious: Yes (Other)
  Sender: FDA-Public Use
  Company Number: US-RB-037340-12

PATIENT
  Sex: Female

DRUGS (4)
  1. SUBOXONE FILM [Suspect]
     Indication: DRUG DEPENDENCE
     Dosage: Suboxone film
     Route: 065
     Dates: start: 201105
  2. SUBOXONE FILM [Suspect]
     Dosage: 4-8 mg daily
     Route: 065
  3. VALTREX TABLET [Concomitant]
     Indication: GENITAL HERPES
     Route: 065
     Dates: start: 200910
  4. NICOTINE [Concomitant]
     Indication: TOBACCO USER
     Dosage: Dose details not provided

REACTIONS (2)
  - Exposure during pregnancy [Recovered/Resolved]
  - Abortion induced [Recovered/Resolved]
